FAERS Safety Report 6719163-8 (Version None)
Quarter: 2010Q2

REPORT INFORMATION
  Report Type: 
  Country: None (occurrence: None)
  Receive Date: 20100510
  Receipt Date: 20100510
  Transmission Date: 20101027
  Serious: Yes (Hospitalization)
  Sender: FDA-Public Use
  Company Number: None

PATIENT
  Age: 89 Year
  Sex: Female
  Weight: 56.8 kg

DRUGS (11)
  1. OFATUMUMAB 1000 MG GSK [Suspect]
     Indication: LYMPHOMA
     Dosage: 1000 MG Q WEEK IV
     Route: 042
     Dates: start: 20100416
  2. OFATUMUMAB 1000 MG GSK [Suspect]
     Indication: LYMPHOMA
     Dosage: 1000 MG Q WEEK IV
     Route: 042
     Dates: start: 20100419
  3. OFATUMUMAB 1000 MG GSK [Suspect]
     Indication: LYMPHOMA
     Dosage: 1000 MG Q WEEK IV
     Route: 042
     Dates: start: 20100423
  4. OFATUMUMAB 1000 MG GSK [Suspect]
     Indication: LYMPHOMA
     Dosage: 1000 MG Q WEEK IV
     Route: 042
     Dates: start: 20100430
  5. FILGRASTIM [Concomitant]
  6. ACETAMINOPHEN [Concomitant]
  7. OMEPRAZOLE [Concomitant]
  8. FLUOXETINE HCL [Concomitant]
  9. PRILOSEC [Concomitant]
  10. BUSPAR [Concomitant]
  11. ATENOLOL [Concomitant]

REACTIONS (7)
  - BLOOD DISORDER [None]
  - LIVER FUNCTION TEST ABNORMAL [None]
  - MALIGNANT NEOPLASM PROGRESSION [None]
  - METASTASIS [None]
  - PLATELET COUNT DECREASED [None]
  - RENAL FAILURE [None]
  - TUMOUR LYSIS SYNDROME [None]
